FAERS Safety Report 9747109 (Version 1)
Quarter: 2013Q4

REPORT INFORMATION
  Report Type: Spontaneous
  Country: US (occurrence: US)
  Receive Date: 20131211
  Receipt Date: 20131211
  Transmission Date: 20140711
  Serious: No
  Sender: FDA-Public Use
  Company Number: US-009507513-1311USA010711

PATIENT
  Age: 28 Year
  Sex: Female

DRUGS (7)
  1. PEGINTRON [Suspect]
     Indication: HEPATITIS C
     Dosage: 120 MCG PER 0.5 ML/ONCE WEEKLY, REDIPEN
     Dates: start: 20131122
  2. RIBAPAK [Suspect]
  3. SYNTHROID [Concomitant]
  4. ZOLOFT [Concomitant]
  5. AMITRIPTYLINE HYDROCHLORIDE [Concomitant]
  6. NEURONTIN [Concomitant]
  7. ZOELLER LABS ZANTREX 3 [Concomitant]

REACTIONS (4)
  - Haemorrhage [Not Recovered/Not Resolved]
  - Injury associated with device [Not Recovered/Not Resolved]
  - Parosmia [Not Recovered/Not Resolved]
  - Product quality issue [Unknown]
